FAERS Safety Report 10841361 (Version 1)
Quarter: 2015Q1

REPORT INFORMATION
  Report Type: Spontaneous
  Country: US (occurrence: US)
  Receive Date: 20150220
  Receipt Date: 20150220
  Transmission Date: 20150721
  Serious: No
  Sender: FDA-Public Use
  Company Number: US-TEVA-499502USA

PATIENT
  Sex: Female

DRUGS (2)
  1. TUMERIC [Concomitant]
     Dosage: 1350 MILLIGRAM DAILY;
  2. TAMOXIFEN [Suspect]
     Active Substance: TAMOXIFEN
     Dosage: 20 MILLIGRAM DAILY;
     Route: 065

REACTIONS (2)
  - Arthralgia [Unknown]
  - Hot flush [Unknown]
